FAERS Safety Report 7183925-6 (Version None)
Quarter: 2010Q4

REPORT INFORMATION
  Report Type: 
  Country: None (occurrence: None)
  Receive Date: 20101222
  Receipt Date: 20101217
  Transmission Date: 20110411
  Serious: Yes (Congenital Anomaly, Other)
  Sender: FDA-Public Use
  Company Number: US-BRISTOL-MYERS SQUIBB COMPANY-14767123

PATIENT
  Sex: Female
  Weight: 3 kg

DRUGS (8)
  1. SUSTIVA [Suspect]
     Dosage: INTERRUPTED ON 16NOV2008,PO
     Route: 064
  2. REYATAZ [Suspect]
     Route: 064
     Dates: start: 20081117, end: 20090711
  3. NORVIR [Suspect]
     Route: 064
     Dates: end: 20090711
  4. EMTRIVA [Suspect]
     Route: 064
  5. TRUVADA [Suspect]
     Dosage: INTERRUPTED ON 16NOV2008M, INTERRUPTED:11JUL09
     Route: 064
     Dates: end: 20081117
  6. PROPYLTHIOURACIL [Concomitant]
     Route: 064
  7. ABILIFY [Concomitant]
     Route: 064
  8. ALBUTEROL INHALER [Concomitant]
     Route: 064

REACTIONS (1)
  - VENTRICULAR SEPTAL DEFECT [None]
